FAERS Safety Report 17809429 (Version 1)
Quarter: 2020Q2

REPORT INFORMATION
  Report Type: Spontaneous
  Country: US (occurrence: US)
  Receive Date: 20200521
  Receipt Date: 20200521
  Transmission Date: 20200714
  Serious: Yes (Other)
  Sender: FDA-Public Use
  Company Number: US-AUROBINDO-AUR-APL-2020-024916

PATIENT
  Age: 78 Year
  Sex: Male

DRUGS (4)
  1. METOPROLOL. [Suspect]
     Active Substance: METOPROLOL
     Indication: PULMONARY HYPERTENSION
     Dosage: 1 DOSAGE FORM TOTAL
     Route: 065
  2. OXYGEN. [Concomitant]
     Active Substance: OXYGEN
     Indication: PRODUCT USED FOR UNKNOWN INDICATION
     Dosage: 3 LITER
     Route: 045
  3. OXYGEN. [Concomitant]
     Active Substance: OXYGEN
     Dosage: 4 LITER
     Route: 045
  4. FUROSEMIDE. [Concomitant]
     Active Substance: FUROSEMIDE
     Indication: POLYURIA
     Dosage: UNK
     Route: 042

REACTIONS (2)
  - Bradycardia [Unknown]
  - Pulse pressure decreased [Unknown]
